FAERS Safety Report 9169951 (Version 1)
Quarter: 2013Q1

REPORT INFORMATION
  Report Type: Spontaneous
  Country: US (occurrence: US)
  Receive Date: 20130307
  Receipt Date: 20130307
  Transmission Date: 20140127
  Serious: Yes (Hospitalization)
  Sender: FDA-Public Use
  Company Number: 2013AP003312

PATIENT
  Age: 62 Year
  Sex: Male

DRUGS (5)
  1. TRAMADOL HYDROCHLORIDE TABLETS [Suspect]
     Indication: MUSCULOSKELETAL PAIN
  2. TRAMADOL HYDROCHLORIDE TABLETS [Suspect]
     Indication: MAJOR DEPRESSION
  3. TRAMADOL HYDROCHLORIDE TABLETS [Suspect]
     Indication: MAJOR DEPRESSION
  4. BUPROPION HYDROCHLORIDE TABLETS [Suspect]
     Indication: MAJOR DEPRESSION
  5. CITALOPRAM [Suspect]
     Indication: MAJOR DEPRESSION

REACTIONS (2)
  - Serotonin syndrome [None]
  - Drug interaction [None]
